FAERS Safety Report 9461238 (Version 2)
Quarter: 2013Q3

REPORT INFORMATION
  Report Type: Spontaneous
  Country: US (occurrence: US)
  Receive Date: 20130816
  Receipt Date: 20130923
  Transmission Date: 20140515
  Serious: No
  Sender: FDA-Public Use
  Company Number: US-PFIZER INC-2013237432

PATIENT
  Age: 54 Year
  Sex: Male
  Weight: 92.06 kg

DRUGS (9)
  1. LYRICA [Suspect]
     Indication: FIBROMYALGIA
     Dosage: 250 MG, 2X/DAY
     Dates: start: 2013
  2. LYRICA [Suspect]
     Indication: HYPOAESTHESIA
     Dosage: 100 MG, 2X/DAY
     Route: 048
     Dates: start: 20130513
  3. LYRICA [Suspect]
     Indication: BURNING SENSATION
  4. MORPHINE SULFATE [Suspect]
     Indication: BACK PAIN
     Dosage: 30 MG, 2X/DAY
     Route: 048
  5. MORPHINE SULFATE [Suspect]
     Indication: GROIN PAIN
     Dosage: 30 MG, 1X/DAY
     Route: 048
  6. ACETAMINOPHEN W/OXYCODONE [Concomitant]
     Indication: BACK PAIN
     Dosage: OXYCODONE 5MG / ACETAMINOPHEN 325 MG, AS NEEDED
  7. ACETAMINOPHEN W/OXYCODONE [Concomitant]
     Indication: GROIN PAIN
  8. ZOLPIDEM [Concomitant]
     Indication: SLEEP DISORDER
     Dosage: 10MG DAILY
  9. MORPHINE [Concomitant]
     Dosage: UNK

REACTIONS (5)
  - Intentional drug misuse [Unknown]
  - Blister [Recovered/Resolved]
  - Pruritus [Recovered/Resolved]
  - Weight increased [Unknown]
  - Stress [Unknown]
